FAERS Safety Report 7247487-7 (Version None)
Quarter: 2011Q1

REPORT INFORMATION
  Report Type: 
  Country: None (occurrence: None)
  Receive Date: 20110127
  Receipt Date: 20110120
  Transmission Date: 20110831
  Serious: Yes (Hospitalization)
  Sender: FDA-Public Use
  Company Number: US-BRISTOL-MYERS SQUIBB COMPANY-15503345

PATIENT

DRUGS (2)
  1. ENBREL [Interacting]
  2. WARFARIN SODIUM [Suspect]

REACTIONS (1)
  - DRUG INTERACTION [None]
